FAERS Safety Report 8509888-6 (Version None)
Quarter: 2012Q3

REPORT INFORMATION
  Report Type: 
  Country: None (occurrence: None)
  Receive Date: 20120713
  Receipt Date: 20120604
  Transmission Date: 20120928
  Serious: Yes (Hospitalization)
  Sender: FDA-Public Use
  Company Number: US-ELI_LILLY_AND_COMPANY-US201207002883

PATIENT
  Age: 77 Year
  Sex: Female
  Weight: 67.12 kg

DRUGS (4)
  1. ADCIRCA [Suspect]
     Indication: PULMONARY ARTERIAL HYPERTENSION
  2. LETAIRIS [Concomitant]
     Indication: PULMONARY HYPERTENSION
     Dosage: UNK
  3. REMODULIN [Concomitant]
     Indication: COR PULMONALE CHRONIC
     Dosage: 2.5 UNK, UNK
     Dates: start: 20100923
  4. DIURETICS [Concomitant]

REACTIONS (2)
  - DYSPNOEA [None]
  - OEDEMA [None]
